FAERS Safety Report 9354268 (Version 3)
Quarter: 2013Q3

REPORT INFORMATION
  Report Type: Report from Study
  Country: CA (occurrence: CA)
  Receive Date: 20130618
  Receipt Date: 20130729
  Transmission Date: 20140515
  Serious: Yes (Other)
  Sender: FDA-Public Use
  Company Number: CA-US-EMD SERONO, INC.-7217092

PATIENT
  Age: 59 Year
  Sex: Female

DRUGS (10)
  1. REBIF [Suspect]
     Indication: RELAPSING-REMITTING MULTIPLE SCLEROSIS
     Route: 058
  2. REBIF [Suspect]
     Route: 058
     Dates: start: 20130607
  3. APO-SERTRALINE                     /01011401/ [Concomitant]
     Indication: DEPRESSION
     Route: 048
  4. WELLBUTRIN                         /00700501/ [Concomitant]
     Indication: DEPRESSION
     Route: 048
  5. TOPAMAX [Concomitant]
     Indication: PRODUCT USED FOR UNKNOWN INDICATION
  6. SYNTHROID [Concomitant]
     Indication: HYPOTHYROIDISM
     Route: 048
  7. ZOPICLONE [Concomitant]
     Indication: SEDATION
     Dosage: BED TIME
     Route: 048
  8. TOPIRAMATE [Concomitant]
     Indication: MIGRAINE PROPHYLAXIS
     Route: 048
  9. REACTINE                           /00884301/ [Concomitant]
     Indication: SEASONAL ALLERGY
     Route: 048
  10. INVERMECTIN [Concomitant]
     Indication: ONCHOCERCIASIS
     Route: 048

REACTIONS (5)
  - Cardiac flutter [Unknown]
  - Palpitations [Recovered/Resolved]
  - Heart rate irregular [Unknown]
  - Pain [Recovering/Resolving]
  - Injection site pain [Recovering/Resolving]
